FAERS Safety Report 15895128 (Version 1)
Quarter: 2019Q1

REPORT INFORMATION
  Report Type: Spontaneous
  Country: US (occurrence: US)
  Receive Date: 20190131
  Receipt Date: 20190131
  Transmission Date: 20190417
  Serious: Yes (Disabling)
  Sender: FDA-Public Use
  Company Number: None

PATIENT
  Age: 69 Year
  Sex: Female
  Weight: 76.5 kg

DRUGS (11)
  1. VITAMIN D [Concomitant]
     Active Substance: CHOLECALCIFEROL
  2. PROLIA [Suspect]
     Active Substance: DENOSUMAB
     Indication: OSTEOPOROSIS
     Dosage: ?          OTHER STRENGTH:UNIT DOSE SYRINGE;OTHER FREQUENCY:Q 6 MONTHS;?
     Route: 058
     Dates: start: 20180417, end: 20181023
  3. LEXAPRO [Concomitant]
     Active Substance: ESCITALOPRAM OXALATE
  4. VITAMIN D3 [Concomitant]
     Active Substance: CHOLECALCIFEROL
  5. VITAMIN B COMPLEX [Concomitant]
     Active Substance: CYANOCOBALAMIN\DEXPANTHENOL\NIACINAMIDE\PYRIDOXINE HYDROCHLORIDE\RIBOFLAVIN 5^-PHOSPHATE SODIUM\THIAMINE HYDROCHLORIDE\VITAMIN B COMPLEX
  6. SLO-FE [Concomitant]
  7. OMEPRAZOLE. [Concomitant]
     Active Substance: OMEPRAZOLE
  8. BIOTIN [Concomitant]
     Active Substance: BIOTIN
  9. CALCIUM [Concomitant]
     Active Substance: CALCIUM
  10. VITAMIN C [Concomitant]
     Active Substance: ASCORBIC ACID
  11. MULTIVIT WITH MINERALS [Concomitant]

REACTIONS (8)
  - Nausea [None]
  - Diarrhoea [None]
  - Rash macular [None]
  - Abdominal pain [None]
  - Vomiting [None]
  - Cyst [None]
  - Oedema peripheral [None]
  - Weight increased [None]

NARRATIVE: CASE EVENT DATE: 20181107
